FAERS Safety Report 6529318-3 (Version None)
Quarter: 2010Q1

REPORT INFORMATION
  Report Type: 
  Country: None (occurrence: None)
  Receive Date: 20100107
  Receipt Date: 20091229
  Transmission Date: 20100710
  Serious: Yes (Other)
  Sender: FDA-Public Use
  Company Number: PHHY2009FR59888

PATIENT
  Sex: Male
  Weight: 105 kg

DRUGS (4)
  1. LAMISIL [Suspect]
     Dosage: 250 MG, BID
     Route: 048
  2. LAMICTAL [Suspect]
     Indication: EPILEPSY
     Dosage: 200 MG, BID
     Dates: start: 20010601
  3. FENOFIBRATE [Concomitant]
     Indication: HYPERCHOLESTEROLAEMIA
     Dosage: 145 MG, UNK
     Route: 048
  4. URBANYL [Concomitant]
     Indication: EPILEPSY
     Dosage: UNK

REACTIONS (2)
  - DRUG DISPENSING ERROR [None]
  - EPILEPSY [None]
